FAERS Safety Report 5302418-1 (Version None)
Quarter: 2007Q2

REPORT INFORMATION
  Report Type: 
  Country: None (occurrence: None)
  Receive Date: 20070413
  Receipt Date: 20070405
  Transmission Date: 20071010
  Serious: Yes (Death, Hospitalization, Other)
  Sender: FDA-Public Use
  Company Number: 430008N07JPN

PATIENT
  Age: 7 Year
  Sex: Male

DRUGS (27)
  1. NOVANTRONE [Suspect]
     Dosage: INTRAVENOUS
     Route: 042
     Dates: start: 20050201, end: 20050212
  2. NOVANTRONE [Suspect]
     Dosage: INTRAVENOUS
     Route: 042
     Dates: start: 20051126, end: 20051206
  3. MYLOTARG [Suspect]
     Dosage: 6 MG/M2, 1 IN 1 DAYS, INTRAVENOUS
     Route: 042
     Dates: start: 20060118, end: 20060118
  4. MYLOTARG [Suspect]
     Dosage: 6 MG/M2, 1 IN 1 DAYS, INTRAVENOUS
     Route: 042
     Dates: start: 20060201, end: 20060201
  5. IDARUBICIN HCL [Suspect]
     Dosage: INTRAVENOUS
     Route: 042
     Dates: start: 20051227, end: 20051230
  6. IDARUBICIN HCL [Suspect]
     Dosage: INTRAVENOUS
     Route: 042
     Dates: start: 20060221, end: 20060424
  7. PIRARUBICIN (PIRARUBICIN) [Suspect]
     Dosage: INTRAVENOUS
     Route: 042
     Dates: start: 20041027, end: 20041102
  8. CYTARABINE [Concomitant]
  9. LENOGRASTIM [Concomitant]
  10. HEPARIN-FRACTION, SODIUM SALT [Concomitant]
  11. NAFAMOSTAT MESILATE [Concomitant]
  12. STRONG NEO-MINOPHAGEN C [Concomitant]
  13. GLUTATHIONE [Concomitant]
  14. FLUDARABINE PHOSPHATE [Concomitant]
  15. TEICOPLANIN [Concomitant]
  16. FLUCONAZOLE [Concomitant]
  17. VORICONAZOLE [Concomitant]
  18. POTASSIUM CANRENOATE [Concomitant]
  19. HYDROCORTISONE SODIUM SUCCINATE [Concomitant]
  20. FUROSEMIDE [Concomitant]
  21. SPIRONOLACTONE [Concomitant]
  22. HYDROXYZINE HYDROCHLORIDE [Concomitant]
  23. METHYLPREDNISOLONE SODIUM SUCCINATE [Concomitant]
  24. ACETAZOLAMIDE [Concomitant]
  25. RANITIDINE HYDROCHLORIDE [Concomitant]
  26. BUCILLAMINE [Concomitant]
  27. ASPARAGINASE [Concomitant]

REACTIONS (10)
  - ANAEMIA [None]
  - CARDIAC FAILURE [None]
  - CHILLS [None]
  - DISSEMINATED INTRAVASCULAR COAGULATION [None]
  - HEPATIC FUNCTION ABNORMAL [None]
  - HYPOXIA [None]
  - PERICARDIAL EFFUSION [None]
  - PLEURAL EFFUSION [None]
  - TUMOUR LYSIS SYNDROME [None]
  - VENTRICULAR DYSFUNCTION [None]
